FAERS Safety Report 4700217-2 (Version None)
Quarter: 2005Q2

REPORT INFORMATION
  Report Type: 
  Country: None (occurrence: None)
  Receive Date: 20050623
  Receipt Date: 20050609
  Transmission Date: 20051028
  Serious: Yes (Other)
  Sender: FDA-Public Use
  Company Number: 01060905

PATIENT
  Sex: Female

DRUGS (1)
  1. ALFERON N INJECTION (INTERFERON ALFA-N3) [Suspect]

REACTIONS (1)
  - PRURITUS [None]
